FAERS Safety Report 6055361-7 (Version None)
Quarter: 2009Q1

REPORT INFORMATION
  Report Type: 
  Country: None (occurrence: None)
  Receive Date: 20090128
  Receipt Date: 20090115
  Transmission Date: 20090719
  Serious: Yes (Life-Threatening)
  Sender: FDA-Public Use
  Company Number: FR-PFIZER INC-2009158874

PATIENT

DRUGS (9)
  1. XANAX [Suspect]
     Dosage: FREQUENCY: ONCE TIME;
     Route: 048
     Dates: start: 20080701, end: 20080701
  2. DIPRIVAN [Suspect]
     Indication: INDUCTION OF ANAESTHESIA
     Dosage: FREQUENCY: ONCE TIME;
     Dates: start: 20080701, end: 20080701
  3. CELOCURIN [Suspect]
     Indication: INDUCTION OF ANAESTHESIA
     Dosage: FREQUENCY: ONCE TIME;
     Dates: start: 20080701, end: 20080701
  4. TAGAMET [Suspect]
     Dosage: FREQUENCY: ONCE TIME;
     Route: 048
     Dates: start: 20080701, end: 20080701
  5. INDAPAMIDE [Concomitant]
     Dosage: UNK
     Route: 048
  6. LEVOTHYROXINE SODIUM [Concomitant]
     Dosage: UNK
     Route: 048
  7. SEVOFLURANE [Concomitant]
     Dates: start: 20080701, end: 20080701
  8. REMIFENTANIL HYDROCHLORIDE [Concomitant]
     Dates: start: 20080701, end: 20080701
  9. PERINDOPRIL [Suspect]
     Dosage: UNK
     Route: 048

REACTIONS (3)
  - BRONCHOSPASM [None]
  - HYPOTENSION [None]
  - HYPOXIA [None]
